FAERS Safety Report 17764655 (Version 1)
Quarter: 2020Q2

REPORT INFORMATION
  Report Type: Spontaneous
  Country: US (occurrence: US)
  Receive Date: 20200511
  Receipt Date: 20200511
  Transmission Date: 20200714
  Serious: No
  Sender: FDA-Public Use
  Company Number: US-ELI_LILLY_AND_COMPANY-US202005001455

PATIENT
  Sex: Female

DRUGS (3)
  1. HUMULIN R [Suspect]
     Active Substance: INSULIN HUMAN
     Indication: TYPE 2 DIABETES MELLITUS
     Dosage: 10 INTERNATIONAL UNIT, EACH MORNING
     Route: 065
     Dates: start: 20200305
  2. HUMULIN R [Suspect]
     Active Substance: INSULIN HUMAN
     Dosage: 42 INTERNATIONAL UNIT, EACH EVENING
     Route: 065
     Dates: start: 20200305
  3. HUMALOG [Suspect]
     Active Substance: INSULIN LISPRO
     Indication: TYPE 2 DIABETES MELLITUS
     Dosage: 18 INTERNATIONAL UNIT, EACH EVENING (DINNER)
     Route: 065
     Dates: start: 20200305

REACTIONS (2)
  - Product storage error [Unknown]
  - Maternal exposure during pregnancy [Unknown]
